FAERS Safety Report 10026629 (Version 2)
Quarter: 2014Q1

REPORT INFORMATION
  Report Type: Spontaneous
  Country: BR (occurrence: BR)
  Receive Date: 20140321
  Receipt Date: 20140326
  Transmission Date: 20141002
  Serious: Yes (Other)
  Sender: FDA-Public Use
  Company Number: BR-UCBSA-114687

PATIENT
  Age: 57 Year
  Sex: Female
  Weight: 95 kg

DRUGS (5)
  1. MIOSAN [Concomitant]
     Indication: FIBROMYALGIA
  2. CIMZIA [Suspect]
     Indication: RHEUMATOID ARTHRITIS
     Dosage: 200MG/ML
     Route: 058
     Dates: start: 20140218
  3. FLUOXETIN [Concomitant]
     Route: 048
     Dates: start: 2004
  4. TECNOMET [Concomitant]
     Indication: RHEUMATOID ARTHRITIS
     Route: 048
     Dates: start: 2000
  5. HALDOL [Concomitant]
     Indication: PAIN

REACTIONS (1)
  - Oral candidiasis [Not Recovered/Not Resolved]
